FAERS Safety Report 8105667-2 (Version None)
Quarter: 2012Q1

REPORT INFORMATION
  Report Type: 
  Country: None (occurrence: None)
  Receive Date: 20120201
  Receipt Date: 20120131
  Transmission Date: 20120608
  Serious: Yes (Death, Hospitalization)
  Sender: FDA-Public Use
  Company Number: US-AMGEN-USASP2011049440

PATIENT
  Age: 73 Year
  Sex: Male
  Weight: 81.633 kg

DRUGS (6)
  1. NPLATE [Suspect]
     Indication: IDIOPATHIC THROMBOCYTOPENIC PURPURA
     Dosage: 5 MUG/KG, QWK
     Dates: start: 20100510, end: 20110211
  2. FLUTICASONE PROPIONATE [Concomitant]
     Route: 048
  3. CARVEDILOL [Concomitant]
     Route: 048
  4. DIGOXIN [Concomitant]
     Route: 048
  5. COUMADIN [Concomitant]
     Route: 048
  6. CAPTOPRIL [Concomitant]
     Route: 048

REACTIONS (4)
  - LUNG NEOPLASM MALIGNANT [None]
  - PNEUMONIA [None]
  - CARDIAC ARREST [None]
  - CHRONIC OBSTRUCTIVE PULMONARY DISEASE [None]
